FAERS Safety Report 5547238-8 (Version None)
Quarter: 2007Q4

REPORT INFORMATION
  Report Type: 
  Country: None (occurrence: None)
  Receive Date: 20071211
  Receipt Date: 20071205
  Transmission Date: 20080405
  Serious: Yes (Other)
  Sender: FDA-Public Use
  Company Number: A0697528A

PATIENT
  Age: 28 Year
  Sex: Female

DRUGS (4)
  1. BUPROPION HYDROCHLORIDE [Suspect]
     Indication: DEPRESSION
     Dosage: 150MG TWICE PER DAY
     Route: 048
     Dates: start: 20070921, end: 20071010
  2. SYNTHROID [Concomitant]
  3. CYTOMEL [Concomitant]
  4. MERIDIA [Concomitant]

REACTIONS (4)
  - ANAPHYLACTIC REACTION [None]
  - EYE SWELLING [None]
  - LIP SWELLING [None]
  - SKIN DISCOLOURATION [None]
